FAERS Safety Report 9304940 (Version 1)
Quarter: 2013Q2

REPORT INFORMATION
  Report Type: Spontaneous
  Country: US (occurrence: None)
  Receive Date: 20130521
  Receipt Date: 20130521
  Transmission Date: 20140414
  Serious: Yes (Other)
  Sender: FDA-Public Use
  Company Number: 2013P1005694

PATIENT
  Age: 63 Year
  Sex: Female

DRUGS (2)
  1. CEFTRIAXONE [Suspect]
  2. VANCOMYCIN [Concomitant]

REACTIONS (1)
  - Acute generalised exanthematous pustulosis [None]
